FAERS Safety Report 11155941 (Version 35)
Quarter: 2022Q4

REPORT INFORMATION
  Report Type: Report from Study
  Country: NL (occurrence: NL)
  Receive Date: 20150602
  Receipt Date: 20221018
  Transmission Date: 20230113
  Serious: Yes (Other)
  Sender: FDA-Public Use
  Company Number: NL-SA-2015SA071357

PATIENT
  Age: 38 Year
  Sex: Female
  Weight: 62 kg

DRUGS (32)
  1. ALEMTUZUMAB [Suspect]
     Active Substance: ALEMTUZUMAB
     Indication: Relapsing multiple sclerosis
     Dosage: 12 MG, QD
     Route: 041
     Dates: start: 20150505, end: 20150509
  2. ALEMTUZUMAB [Suspect]
     Active Substance: ALEMTUZUMAB
     Dosage: 12 MG, QD
     Route: 041
     Dates: start: 20160404, end: 20160406
  3. ALEMTUZUMAB [Suspect]
     Active Substance: ALEMTUZUMAB
     Dosage: 12 MG, QD
     Route: 041
     Dates: start: 20181015, end: 20181017
  4. METHYLPREDNISOLONE [Concomitant]
     Active Substance: METHYLPREDNISOLONE
     Indication: Prophylaxis
     Dosage: 1000 MG, QD
     Route: 042
     Dates: start: 20150505, end: 20150508
  5. METHYLPREDNISOLONE [Concomitant]
     Active Substance: METHYLPREDNISOLONE
     Indication: Drug therapy
     Dosage: 1000 MG, QD
     Route: 042
     Dates: start: 20150608, end: 20150610
  6. METHYLPREDNISOLONE [Concomitant]
     Active Substance: METHYLPREDNISOLONE
     Dosage: 1000 MG, QD
     Route: 042
     Dates: start: 20160404, end: 20160406
  7. METHYLPREDNISOLONE [Concomitant]
     Active Substance: METHYLPREDNISOLONE
     Dosage: 1000 MG
     Route: 042
     Dates: start: 20181015, end: 20181018
  8. MIRABEGRON [Concomitant]
     Active Substance: MIRABEGRON
     Indication: Prophylaxis
     Dosage: 50 MG,QD
     Route: 048
     Dates: start: 20150505
  9. ACETAMINOPHEN [Concomitant]
     Active Substance: ACETAMINOPHEN
     Indication: Prophylaxis
     Dosage: 1000 MG,QD
     Route: 048
     Dates: start: 20150504
  10. ACETAMINOPHEN [Concomitant]
     Active Substance: ACETAMINOPHEN
     Dosage: 1000 MG,QD
     Route: 048
     Dates: start: 20160404
  11. NICOTINE [Concomitant]
     Active Substance: NICOTINE
     Indication: Prophylaxis
     Dosage: 7 MG,QD
     Route: 062
     Dates: start: 20150501
  12. ACYCLOVIR [Concomitant]
     Active Substance: ACYCLOVIR
     Indication: Prophylaxis
     Dosage: 400 MG, QD
     Route: 048
     Dates: start: 20150505, end: 20150603
  13. ACYCLOVIR [Concomitant]
     Active Substance: ACYCLOVIR
     Dosage: 800 MG, QD
     Route: 048
     Dates: start: 20160404, end: 20160501
  14. ACYCLOVIR [Concomitant]
     Active Substance: ACYCLOVIR
     Dosage: 800 MG
     Route: 048
     Dates: start: 20181015, end: 20181112
  15. BACLOFEN [Concomitant]
     Active Substance: BACLOFEN
     Indication: Prophylaxis
     Dosage: 10 MG,QD
     Route: 048
     Dates: start: 20150501
  16. BACLOFEN [Concomitant]
     Active Substance: BACLOFEN
     Indication: Multiple sclerosis
  17. CLEMASTINE [Concomitant]
     Active Substance: CLEMASTINE
     Indication: Prophylaxis
     Dosage: 1 MG,QD
     Route: 048
     Dates: start: 20150505, end: 20150510
  18. CLEMASTINE [Concomitant]
     Active Substance: CLEMASTINE
     Dosage: 2 MG,QD
     Route: 048
     Dates: start: 20150519, end: 20150618
  19. CLEMASTINE [Concomitant]
     Active Substance: CLEMASTINE
     Dosage: 2 MG
     Route: 048
     Dates: start: 20150505, end: 20150510
  20. CHOLECALCIFEROL [Concomitant]
     Active Substance: CHOLECALCIFEROL
     Indication: Prophylaxis
     Dosage: 800 IU,QD
     Route: 048
     Dates: start: 20150505
  21. RANITIDINE [Concomitant]
     Active Substance: RANITIDINE
     Indication: Prophylaxis
     Dosage: 300 MG,QD
     Route: 048
     Dates: start: 20150507, end: 20150602
  22. RANITIDINE [Concomitant]
     Active Substance: RANITIDINE
     Dosage: 150 MG,QD
     Route: 048
     Dates: start: 20150505, end: 20150509
  23. RANITIDINE [Concomitant]
     Active Substance: RANITIDINE
     Dosage: 300 MG,QD
     Route: 048
     Dates: start: 20150608, end: 20150610
  24. RANITIDINE [Concomitant]
     Active Substance: RANITIDINE
     Dosage: 300 MG,QD
     Route: 048
     Dates: start: 20160404, end: 20160406
  25. DIAZEPAM [Concomitant]
     Active Substance: DIAZEPAM
     Indication: Prophylaxis
     Dosage: 5 MG
     Route: 048
     Dates: start: 20160125, end: 20160125
  26. CLEMASTINE FUMARATE [Concomitant]
     Active Substance: CLEMASTINE FUMARATE
     Indication: Prophylaxis
     Dosage: 2 MG
     Route: 048
     Dates: start: 20160404, end: 20160406
  27. CLEMASTINE FUMARATE [Concomitant]
     Active Substance: CLEMASTINE FUMARATE
     Dosage: 2 MG
     Route: 048
     Dates: start: 20181015, end: 20181018
  28. FOLIC ACID [Concomitant]
     Active Substance: FOLIC ACID
     Indication: Prophylaxis
     Dosage: 5 MG,QD
     Route: 048
     Dates: start: 20150501, end: 20160331
  29. MOVICOLON [Concomitant]
     Active Substance: POLYETHYLENE GLYCOL 3350\POTASSIUM CHLORIDE\SODIUM BICARBONATE\SODIUM CHLORIDE
     Dosage: 1 DF,QD
     Route: 048
     Dates: start: 20150608, end: 20150831
  30. DALFAMPRIDINE [Concomitant]
     Active Substance: DALFAMPRIDINE
     Indication: Multiple sclerosis
     Dosage: 20 MG
     Route: 048
     Dates: start: 20170715, end: 20170929
  31. MIRTAZAPINE [Concomitant]
     Active Substance: MIRTAZAPINE
     Dosage: 30 MG
     Route: 048
     Dates: start: 2014
  32. SOLIFENACIN [Concomitant]
     Active Substance: SOLIFENACIN
     Dosage: 5 MG
     Route: 048
     Dates: start: 20191017, end: 20200205

REACTIONS (36)
  - Palpitations [Recovered/Resolved]
  - Melanocytic naevus [Recovered/Resolved]
  - Alopecia [Recovered/Resolved]
  - Alopecia [Recovered/Resolved]
  - Back pain [Recovered/Resolved]
  - Headache [Recovered/Resolved]
  - Rash [Recovered/Resolved]
  - Pyrexia [Recovered/Resolved]
  - Urticaria [Recovered/Resolved]
  - Headache [Not Recovered/Not Resolved]
  - Dizziness [Recovered/Resolved]
  - Urinary tract infection [Recovered/Resolved]
  - Urinary tract infection [Recovered/Resolved]
  - Melanocytic naevus [Recovered/Resolved]
  - Tricuspid valve incompetence [Recovered/Resolved]
  - Haematoma [Recovered/Resolved]
  - Tricuspid valve incompetence [Recovered/Resolved]
  - Macular pigmentation [Recovered/Resolved]
  - Blood folate decreased [Recovered/Resolved]
  - Face oedema [Recovered/Resolved]
  - Tricuspid valve incompetence [Not Recovered/Not Resolved]
  - Localised oedema [Recovered/Resolved]
  - Peripheral swelling [Recovered/Resolved]
  - Multiple sclerosis relapse [Recovered/Resolved]
  - Multiple sclerosis relapse [Recovered/Resolved]
  - Multiple sclerosis [Recovered/Resolved]
  - Pyrexia [Recovered/Resolved]
  - Influenza [Recovered/Resolved]
  - Influenza [Recovered/Resolved]
  - Gastroenteritis viral [Recovered/Resolved]
  - Gastroenteritis viral [Recovered/Resolved]
  - Nail infection [Recovered/Resolved]
  - Fatigue [Not Recovered/Not Resolved]
  - Abdominal pain [Recovered/Resolved]
  - Influenza [Recovered/Resolved]
  - Urinary tract infection [Recovered/Resolved]

NARRATIVE: CASE EVENT DATE: 20150505
